FAERS Safety Report 5707982-6 (Version None)
Quarter: 2008Q2

REPORT INFORMATION
  Report Type: 
  Country: None (occurrence: None)
  Receive Date: 20080417
  Receipt Date: 20080411
  Transmission Date: 20081010
  Serious: Yes (Hospitalization, Other)
  Sender: FDA-Public Use
  Company Number: PHHY2008AU03684

PATIENT
  Age: 35 Year
  Sex: Male

DRUGS (5)
  1. CLOZARIL [Suspect]
     Indication: SCHIZOPHRENIA
     Dosage: 500MG
     Route: 048
     Dates: start: 19960628, end: 20080319
  2. CLOZARIL [Suspect]
     Dosage: 12.5 MG
     Route: 048
     Dates: start: 20080325
  3. CLOZARIL [Suspect]
     Dosage: 300 MG
  4. VALPROIC ACID [Concomitant]
  5. INDOMETHACIN [Concomitant]
     Indication: PYELONEPHRITIS
     Dosage: 25 G, TID
     Dates: start: 20080320, end: 20080325

REACTIONS (14)
  - C-REACTIVE PROTEIN INCREASED [None]
  - CHILLS [None]
  - DYSURIA [None]
  - MALAISE [None]
  - NEUTROPHIL COUNT DECREASED [None]
  - POLLAKIURIA [None]
  - PROSTATIC SPECIFIC ANTIGEN INCREASED [None]
  - PROSTATITIS [None]
  - PYELONEPHRITIS [None]
  - PYREXIA [None]
  - SEPSIS [None]
  - URETHRAL DISCHARGE [None]
  - URINARY TRACT INFECTION [None]
  - WHITE BLOOD CELL COUNT DECREASED [None]
